FAERS Safety Report 5216344-X (Version None)
Quarter: 2007Q1

REPORT INFORMATION
  Report Type: 
  Country: None (occurrence: None)
  Receive Date: 20070123
  Receipt Date: 20070112
  Transmission Date: 20070707
  Serious: Yes (Other)
  Sender: FDA-Public Use
  Company Number: GB-PFIZER INC-2007004758

PATIENT
  Sex: Male

DRUGS (2)
  1. VIAGRA [Suspect]
     Indication: ERECTILE DYSFUNCTION
  2. WARFARIN SODIUM [Concomitant]

REACTIONS (5)
  - DEEP VEIN THROMBOSIS [None]
  - DIZZINESS [None]
  - HYPERHIDROSIS [None]
  - INCONTINENCE [None]
  - LOSS OF CONSCIOUSNESS [None]
